FAERS Safety Report 4920882-4 (Version None)
Quarter: 2006Q1

REPORT INFORMATION
  Report Type: 
  Country: None (occurrence: None)
  Receive Date: 20060216
  Receipt Date: 20060213
  Transmission Date: 20060701
  Serious: Yes (Hospitalization)
  Sender: FDA-Public Use
  Company Number: ITWYE387413FEB06

PATIENT
  Age: 44 Year
  Sex: Male

DRUGS (18)
  1. RAPAMUNE [Suspect]
     Indication: PROPHYLAXIS AGAINST TRANSPLANT REJECTION
     Dosage: SEE IMAGE
     Route: 048
     Dates: start: 20051010, end: 20051010
  2. RAPAMUNE [Suspect]
     Indication: PROPHYLAXIS AGAINST TRANSPLANT REJECTION
     Dosage: SEE IMAGE
     Route: 048
     Dates: start: 20051011, end: 20051024
  3. RAPAMUNE [Suspect]
     Indication: PROPHYLAXIS AGAINST TRANSPLANT REJECTION
     Dosage: SEE IMAGE
     Route: 048
     Dates: start: 20051025, end: 20051113
  4. RAPAMUNE [Suspect]
     Indication: PROPHYLAXIS AGAINST TRANSPLANT REJECTION
     Dosage: SEE IMAGE
     Route: 048
     Dates: start: 20051114, end: 20051114
  5. RAPAMUNE [Suspect]
     Indication: PROPHYLAXIS AGAINST TRANSPLANT REJECTION
     Dosage: SEE IMAGE
     Route: 048
     Dates: start: 20051115, end: 20051124
  6. RAPAMUNE [Suspect]
     Indication: PROPHYLAXIS AGAINST TRANSPLANT REJECTION
     Dosage: SEE IMAGE
     Route: 048
     Dates: start: 20051125, end: 20060209
  7. PREDNISONE TAB [Concomitant]
     Dosage: SEE IMAGE
  8. ...................... [Concomitant]
  9. ...................... [Concomitant]
  10. ......................... [Concomitant]
  11. SULFAMETHOXAZOLE + TRIMETHOPRIM [Concomitant]
  12. AMLODIPINE [Concomitant]
  13. ATORVASTATIN CALCIUM [Concomitant]
  14. CARVEDILOL [Concomitant]
  15. INSULIN [Concomitant]
  16. OMEPRAZOLE [Concomitant]
  17. VALSARTAN [Concomitant]
  18. CEFTAZIDIME SODIUM [Concomitant]

REACTIONS (1)
  - KIDNEY TRANSPLANT REJECTION [None]
